FAERS Safety Report 24341349 (Version 1)
Quarter: 2024Q3

REPORT INFORMATION
  Report Type: Spontaneous
  Country: AT (occurrence: AT)
  Receive Date: 20240920
  Receipt Date: 20240920
  Transmission Date: 20241017
  Serious: Yes (Other)
  Sender: SANDOZ
  Company Number: AT-ROCHE-3313527

PATIENT
  Age: 60 Year
  Sex: Female
  Weight: 86 kg

DRUGS (73)
  1. CAPECITABINE [Suspect]
     Active Substance: CAPECITABINE
     Dosage: 500 MG
     Route: 048
     Dates: end: 20210924
  2. CAPECITABINE [Suspect]
     Active Substance: CAPECITABINE
     Indication: HER2 positive breast cancer
     Dosage: 500 MG, OTHER ( MOST RECENT DOSE PRIOR TO THE EVENT: 30 DEC 2021)
     Route: 048
     Dates: start: 20210618, end: 20210924
  3. LETROZOLE [Suspect]
     Active Substance: LETROZOLE
     Indication: HER2 positive breast cancer
     Dosage: 2.5 MG, QD (MOST RECENT DOSE PRIOR TO THE EVENT: 09 NOV 2020)
     Route: 048
     Dates: start: 20200210
  4. LETROZOLE [Suspect]
     Active Substance: LETROZOLE
     Dosage: 3 MG, QD
     Route: 048
     Dates: start: 20201109
  5. PACLITAXEL [Suspect]
     Active Substance: PACLITAXEL
     Indication: HER2 positive breast cancer
     Dosage: 186.31 MG(MOST RECENT DOSE PRIOR TO AE 27/JAN/2020)
     Route: 042
     Dates: start: 20200103
  6. PERTUZUMAB [Suspect]
     Active Substance: PERTUZUMAB
     Indication: HER2 positive breast cancer
     Dosage: MOST RECENT DOSE PRIOR TO THE EVENT: 3/JAN/2020
     Route: 042
     Dates: start: 20191014
  7. PERTUZUMAB [Suspect]
     Active Substance: PERTUZUMAB
     Dosage: 840 MG, TIW
     Route: 041
  8. PERTUZUMAB [Suspect]
     Active Substance: PERTUZUMAB
     Dosage: 840 MG, TIW
     Route: 042
  9. PERTUZUMAB [Suspect]
     Active Substance: PERTUZUMAB
     Dosage: MOST RECENT DOSE PRIOR TO THE EVENT: 3/JAN/2020
     Route: 041
     Dates: start: 20191014, end: 20191014
  10. TAMOXIFEN [Suspect]
     Active Substance: TAMOXIFEN
     Dosage: 20 MG, QD
     Route: 048
     Dates: start: 20210304
  11. TAMOXIFEN [Suspect]
     Active Substance: TAMOXIFEN
     Indication: HER2 positive breast cancer
     Dosage: 20 MG, QD (MOST RECENT DOSE PRIOR TO AE 04 MAR 2021)
     Route: 048
     Dates: start: 20210112
  12. TRASTUZUMAB [Suspect]
     Active Substance: TRASTUZUMAB
     Indication: HER2 positive breast cancer
     Dosage: 600 MG, TIW (MOST RECENT DOSE PRIOR TO THE EVENT: 28 OCT 2021)
     Route: 059
     Dates: start: 20210618, end: 20210910
  13. ADO-TRASTUZUMAB EMTANSINE [Suspect]
     Active Substance: ADO-TRASTUZUMAB EMTANSINE
     Indication: HER2 positive breast cancer
     Dosage: 306 MG, Q3W
     Route: 042
     Dates: start: 20210316, end: 20210520
  14. ADO-TRASTUZUMAB EMTANSINE [Suspect]
     Active Substance: ADO-TRASTUZUMAB EMTANSINE
     Dosage: 306 MG, Q3W
     Route: 041
     Dates: start: 20210316, end: 20210520
  15. TUCATINIB [Suspect]
     Active Substance: TUCATINIB
     Dosage: 300 MG
     Route: 048
     Dates: start: 20220121
  16. TUCATINIB [Suspect]
     Active Substance: TUCATINIB
     Indication: HER2 positive breast cancer
     Dosage: MOST RECENT DOSE PRIOR TO THE EVENT: 21/JAN/2022
     Route: 048
     Dates: start: 20210618, end: 20211001
  17. Acemin [Concomitant]
     Dosage: UNK
     Route: 065
     Dates: end: 20220715
  18. Acemin [Concomitant]
     Indication: Product used for unknown indication
     Dosage: UNK (ONGOING = NOT CHECKED)
     Route: 065
     Dates: end: 20220715
  19. ALVESCO [Concomitant]
     Active Substance: CICLESONIDE
     Indication: Product used for unknown indication
     Dosage: UNK (ONGOING)
     Route: 065
  20. ALVESCO [Concomitant]
     Active Substance: CICLESONIDE
     Dosage: ONGOING = CHECKED
     Route: 065
  21. ALVESCO [Concomitant]
     Active Substance: CICLESONIDE
     Dosage: ONGOING = CHECKED
     Route: 065
  22. BEROTEC [Concomitant]
     Active Substance: FENOTEROL HYDROBROMIDE
     Indication: Product used for unknown indication
     Dosage: UNK
     Route: 065
  23. BEROTEC [Concomitant]
     Active Substance: FENOTEROL HYDROBROMIDE
     Dosage: ONGOING
     Route: 065
  24. BEROTEC [Concomitant]
     Active Substance: FENOTEROL HYDROBROMIDE
     Dosage: ONGOING = CHECKED
     Route: 065
  25. BEROTEC [Concomitant]
     Active Substance: FENOTEROL HYDROBROMIDE
     Dosage: ONGOING = CHECKED
     Route: 065
  26. VITAMINS WITH MINERALS [Concomitant]
     Active Substance: MINERALS\VITAMINS
     Dosage: ONGOING
     Route: 065
  27. VITAMINS WITH MINERALS [Concomitant]
     Active Substance: MINERALS\VITAMINS
     Indication: Product used for unknown indication
     Dosage: UNK
     Route: 065
  28. VITAMINS WITH MINERALS [Concomitant]
     Active Substance: MINERALS\VITAMINS
     Dosage: ONGOING = CHECKED
     Route: 065
  29. VITAMINS WITH MINERALS [Concomitant]
     Active Substance: MINERALS\VITAMINS
     Dosage: ONGOING = CHECKED
     Route: 065
  30. VITAMINS WITH MINERALS [Concomitant]
     Active Substance: MINERALS\VITAMINS
     Dosage: ONGOING = CHECKED
     Route: 065
  31. VITAMINS WITH MINERALS [Concomitant]
     Active Substance: MINERALS\VITAMINS
     Dosage: ONGOING = CHECKED
     Route: 065
  32. VITAMINS WITH MINERALS [Concomitant]
     Active Substance: MINERALS\VITAMINS
     Dosage: ONGOING = CHECKED
     Route: 065
  33. BISOPROLOL FUMARATE [Concomitant]
     Active Substance: BISOPROLOL FUMARATE
     Dosage: ONGOING = NOT CHECKED
     Route: 065
     Dates: end: 20220715
  34. BISOPROLOL FUMARATE [Concomitant]
     Active Substance: BISOPROLOL FUMARATE
     Dosage: UNK
     Route: 065
     Dates: end: 20220715
  35. BISOPROLOL FUMARATE [Concomitant]
     Active Substance: BISOPROLOL FUMARATE
     Indication: Product used for unknown indication
     Dosage: UNK (ONGOING = NOT CHECKED)
     Route: 065
     Dates: end: 20220715
  36. BISOPROLOL FUMARATE [Concomitant]
     Active Substance: BISOPROLOL FUMARATE
     Dosage: ONGOING = NOT CHECKED
     Route: 065
     Dates: end: 20220715
  37. ROFLUMILAST [Concomitant]
     Active Substance: ROFLUMILAST
     Indication: Product used for unknown indication
     Dosage: UNK
     Route: 065
  38. ROFLUMILAST [Concomitant]
     Active Substance: ROFLUMILAST
     Dosage: ONGOING
     Route: 065
  39. ROFLUMILAST [Concomitant]
     Active Substance: ROFLUMILAST
     Dosage: ONGOING = CHECKED
     Route: 065
  40. ROFLUMILAST [Concomitant]
     Active Substance: ROFLUMILAST
     Dosage: ONGOING = CHECKED
     Route: 065
  41. DILTIAZEM [Concomitant]
     Active Substance: DILTIAZEM
     Indication: Product used for unknown indication
     Dosage: UNK (ONGOING = NOT CHECKED)
     Route: 065
     Dates: end: 20220715
  42. DILTIAZEM [Concomitant]
     Active Substance: DILTIAZEM
     Dosage: ONGOING = NOT CHECKED
     Route: 065
     Dates: end: 20220715
  43. DILTIAZEM [Concomitant]
     Active Substance: DILTIAZEM
     Dosage: ONGOING = NOT CHECKED
     Route: 065
     Dates: end: 20220715
  44. DILTIAZEM [Concomitant]
     Active Substance: DILTIAZEM
     Dosage: ONGOING = NOT CHECKED
     Route: 065
     Dates: end: 20220715
  45. DILTIAZEM [Concomitant]
     Active Substance: DILTIAZEM
     Dosage: ONGOING = NOT CHECKED
     Route: 065
     Dates: end: 20220715
  46. VENLAFAXINE HYDROCHLORIDE [Concomitant]
     Active Substance: VENLAFAXINE HYDROCHLORIDE
     Indication: Product used for unknown indication
     Dosage: UNK
     Route: 065
  47. VENLAFAXINE HYDROCHLORIDE [Concomitant]
     Active Substance: VENLAFAXINE HYDROCHLORIDE
     Dosage: ONGOING = CHECKED
     Route: 065
  48. VENLAFAXINE HYDROCHLORIDE [Concomitant]
     Active Substance: VENLAFAXINE HYDROCHLORIDE
     Dosage: ONGOING
     Route: 065
  49. VENLAFAXINE HYDROCHLORIDE [Concomitant]
     Active Substance: VENLAFAXINE HYDROCHLORIDE
     Dosage: ONGOING = CHECKED
     Route: 065
  50. LOPERAMIDE HYDROCHLORIDE [Concomitant]
     Active Substance: LOPERAMIDE HYDROCHLORIDE
     Indication: Diarrhoea
     Dosage: UNK
     Route: 065
     Dates: start: 20191024
  51. HYDROMORPHONE HYDROCHLORIDE [Concomitant]
     Active Substance: HYDROMORPHONE HYDROCHLORIDE
     Indication: Product used for unknown indication
     Dosage: UNK
     Route: 065
     Dates: start: 20211230
  52. LAFENE [Concomitant]
     Indication: Product used for unknown indication
     Dosage: ONGOING
     Route: 065
     Dates: start: 20220115
  53. POLYETHYLENE GLYCOL 3350\POTASSIUM CHLORIDE\SODIUM BICARBONATE\SODIUM [Concomitant]
     Active Substance: POLYETHYLENE GLYCOL 3350\POTASSIUM CHLORIDE\SODIUM BICARBONATE\SODIUM CHLORIDE
     Indication: Product used for unknown indication
     Dosage: ONGOING
     Route: 065
     Dates: start: 20191015
  54. Novalgin [Concomitant]
     Indication: Chest pain
     Dosage: ONGOING
     Route: 065
     Dates: start: 20200724
  55. PANTOPRAZOLE SODIUM [Concomitant]
     Active Substance: PANTOPRAZOLE SODIUM
     Indication: Product used for unknown indication
     Dosage: UNK
     Route: 065
  56. PANTOPRAZOLE SODIUM [Concomitant]
     Active Substance: PANTOPRAZOLE SODIUM
     Dosage: ONGOING
     Route: 065
  57. PANTOPRAZOLE SODIUM [Concomitant]
     Active Substance: PANTOPRAZOLE SODIUM
     Dosage: ONGOING = CHECKED
     Route: 065
  58. PANTOPRAZOLE SODIUM [Concomitant]
     Active Substance: PANTOPRAZOLE SODIUM
     Dosage: ONGOING = CHECKED
     Route: 065
  59. Paspertin [Concomitant]
     Indication: Product used for unknown indication
     Dosage: ONGOING
     Route: 065
     Dates: start: 20191015
  60. PASSEDAN [Concomitant]
     Indication: Product used for unknown indication
     Dosage: ONGOING
     Route: 065
     Dates: start: 20191010
  61. SIMVASTATIN [Concomitant]
     Active Substance: SIMVASTATIN
     Indication: Product used for unknown indication
     Dosage: UNK
     Route: 065
  62. SIMVASTATIN [Concomitant]
     Active Substance: SIMVASTATIN
     Dosage: ONGOING
     Route: 065
  63. SIMVASTATIN [Concomitant]
     Active Substance: SIMVASTATIN
     Dosage: ONGOING = CHECKED
     Route: 065
  64. SIMVASTATIN [Concomitant]
     Active Substance: SIMVASTATIN
     Dosage: ONGOING = CHECKED
     Route: 065
  65. OLODATEROL HYDROCHLORIDE\TIOTROPIUM BROMIDE MONOHYDRATE [Concomitant]
     Active Substance: OLODATEROL HYDROCHLORIDE\TIOTROPIUM BROMIDE MONOHYDRATE
     Indication: Product used for unknown indication
     Dosage: UNK
     Route: 065
  66. OLODATEROL HYDROCHLORIDE\TIOTROPIUM BROMIDE MONOHYDRATE [Concomitant]
     Active Substance: OLODATEROL HYDROCHLORIDE\TIOTROPIUM BROMIDE MONOHYDRATE
     Dosage: ONGOING
     Route: 065
  67. OLODATEROL HYDROCHLORIDE\TIOTROPIUM BROMIDE MONOHYDRATE [Concomitant]
     Active Substance: OLODATEROL HYDROCHLORIDE\TIOTROPIUM BROMIDE MONOHYDRATE
     Dosage: ONGOING = CHECKED
     Route: 065
  68. OLODATEROL HYDROCHLORIDE\TIOTROPIUM BROMIDE MONOHYDRATE [Concomitant]
     Active Substance: OLODATEROL HYDROCHLORIDE\TIOTROPIUM BROMIDE MONOHYDRATE
     Dosage: ONGOING = CHECKED
     Route: 065
  69. BECLOMETHASONE DIPROPIONATE\FORMOTEROL FUMARATE\GLYCOPYRROLATE [Concomitant]
     Active Substance: BECLOMETHASONE DIPROPIONATE\FORMOTEROL FUMARATE\GLYCOPYRROLATE
     Indication: Product used for unknown indication
     Dosage: ONGOING = CHECKED
     Route: 065
  70. TRAZODONE HYDROCHLORIDE [Concomitant]
     Active Substance: TRAZODONE HYDROCHLORIDE
     Indication: Product used for unknown indication
     Dosage: UNK
     Route: 065
  71. TRAZODONE HYDROCHLORIDE [Concomitant]
     Active Substance: TRAZODONE HYDROCHLORIDE
     Dosage: ONGOING
     Route: 065
  72. TRAZODONE HYDROCHLORIDE [Concomitant]
     Active Substance: TRAZODONE HYDROCHLORIDE
     Dosage: ONGOING = CHECKED
     Route: 065
  73. TRAZODONE HYDROCHLORIDE [Concomitant]
     Active Substance: TRAZODONE HYDROCHLORIDE
     Dosage: ONGOING = CHECKED
     Route: 065

REACTIONS (1)
  - Seizure [Recovered/Resolved]

NARRATIVE: CASE EVENT DATE: 20220315
